FAERS Safety Report 5353969-5 (Version None)
Quarter: 2007Q2

REPORT INFORMATION
  Report Type: 
  Country: None (occurrence: None)
  Receive Date: 20070612
  Receipt Date: 20070531
  Transmission Date: 20071010
  Serious: Yes (Other)
  Sender: FDA-Public Use
  Company Number: DE-GENENTECH-242557

PATIENT
  Sex: Female
  Weight: 75 kg

DRUGS (2)
  1. HERCEPTIN [Suspect]
     Indication: BREAST CANCER METASTATIC
     Dosage: 470 MG, UNK
     Route: 042
     Dates: start: 20020314
  2. EXEMESTANE [Concomitant]
     Indication: BREAST CANCER METASTATIC
     Dates: start: 20011115

REACTIONS (1)
  - SCINTILLATING SCOTOMA [None]
